FAERS Safety Report 4296733-0 (Version None)
Quarter: 2004Q1

REPORT INFORMATION
  Report Type: 
  Country: None (occurrence: None)
  Receive Date: 20040126
  Receipt Date: 20030904
  Transmission Date: 20041129
  Serious: No
  Sender: FDA-Public Use
  Company Number: USA030946287

PATIENT
  Age: 42 Year
  Sex: Female
  Weight: 59 kg

DRUGS (7)
  1. STRATTERA [Suspect]
     Indication: ATTENTION DEFICIT/HYPERACTIVITY DISORDER
     Dosage: 40 MG/DAY
  2. ADDERALL 10 [Concomitant]
  3. CELEXA [Concomitant]
  4. BUSPAR [Concomitant]
  5. ORTHO TRI-CYCLEN [Concomitant]
  6. CLARINEX [Concomitant]
  7. WELLBUTRIN [Concomitant]

REACTIONS (7)
  - AGITATION [None]
  - CONSTIPATION [None]
  - DRUG INEFFECTIVE [None]
  - EARLY MORNING AWAKENING [None]
  - FATIGUE [None]
  - POLLAKIURIA [None]
  - SPEECH DISORDER [None]
